FAERS Safety Report 5833826-8 (Version None)
Quarter: 2008Q3

REPORT INFORMATION
  Report Type: 
  Country: None (occurrence: None)
  Receive Date: 20080801
  Receipt Date: 20080801
  Transmission Date: 20090109
  Serious: Yes (Hospitalization)
  Sender: FDA-Public Use
  Company Number: None

PATIENT
  Age: 45 Year
  Sex: Male

DRUGS (2)
  1. SIMVASTIN [Suspect]
     Indication: HYPERLIPIDAEMIA
     Dosage: 80 MG AT BEDTIME PO
     Route: 048
     Dates: start: 20080613, end: 20080716
  2. GEMFIBROZIL [Suspect]
     Indication: HYPERLIPIDAEMIA
     Dosage: 600 MG BID PO
     Route: 048
     Dates: start: 20080613, end: 20080716

REACTIONS (1)
  - RHABDOMYOLYSIS [None]
